FAERS Safety Report 9825042 (Version 1)
Quarter: 2014Q1

REPORT INFORMATION
  Report Type: Spontaneous
  Country: US (occurrence: None)
  Receive Date: 20140115
  Receipt Date: 20140115
  Transmission Date: 20141002
  Serious: Yes (Other)
  Sender: FDA-Public Use
  Company Number: None

PATIENT
  Age: 55 Year
  Sex: Female

DRUGS (9)
  1. REBIF [Suspect]
     Route: 058
     Dates: start: 20120807, end: 20140113
  2. AMPYRA [Concomitant]
  3. PROZAC [Concomitant]
  4. LYRICA [Concomitant]
  5. IBUPROFEN [Concomitant]
  6. FOSAMAX [Concomitant]
  7. CALCIUM/VIT D [Concomitant]
  8. ALBUTEROL [Concomitant]
  9. VENTOLIN [Concomitant]

REACTIONS (1)
  - Cellulitis [None]
